FAERS Safety Report 4539641-X (Version None)
Quarter: 2004Q4

REPORT INFORMATION
  Report Type: 
  Country: None (occurrence: None)
  Receive Date: 20041228
  Receipt Date: 20041214
  Transmission Date: 20050328
  Serious: Yes (Other)
  Sender: FDA-Public Use
  Company Number: TW-MERCK-0412TWN00011

PATIENT
  Age: 49 Year
  Sex: Male

DRUGS (1)
  1. CLINORIL [Suspect]
     Indication: BACK PAIN
     Route: 048

REACTIONS (3)
  - BLADDER CANCER [None]
  - BLADDER DISORDER [None]
  - NEPHROPATHY TOXIC [None]
